FAERS Safety Report 4381355-3 (Version None)
Quarter: 2004Q2

REPORT INFORMATION
  Report Type: 
  Country: None (occurrence: None)
  Receive Date: 20040616
  Receipt Date: 20040604
  Transmission Date: 20050107
  Serious: Yes (Hospitalization)
  Sender: FDA-Public Use
  Company Number: PERC20040026

PATIENT
  Age: 51 Year
  Sex: Male
  Weight: 89 kg

DRUGS (7)
  1. PERCOCET [Suspect]
     Dosage: 2 TABS ONCE PO
     Route: 048
     Dates: start: 20040215, end: 20040215
  2. NATEGLINIDE OR PLACEBO [Suspect]
     Indication: GLUCOSE TOLERANCE IMPAIRED
     Dosage: PO
     Route: 048
     Dates: start: 20030610
  3. VALSARTAN OR PLACEBO [Suspect]
     Indication: CARDIOVASCULAR DISORDER
     Dates: start: 20030610
  4. TOPROL-XL [Concomitant]
  5. ASPIRIN [Concomitant]
  6. LIPITOR [Concomitant]
  7. PREVACID [Concomitant]

REACTIONS (5)
  - CORONARY ARTERY OCCLUSION [None]
  - FEELING ABNORMAL [None]
  - HYPOTENSION [None]
  - PALPITATIONS [None]
  - POST PROCEDURAL COMPLICATION [None]
